FAERS Safety Report 15308060 (Version 1)
Quarter: 2018Q3

REPORT INFORMATION
  Report Type: Report from Study
  Country: US (occurrence: US)
  Receive Date: 20180822
  Receipt Date: 20180822
  Transmission Date: 20181010
  Serious: Yes (Hospitalization, Other)
  Sender: FDA-Public Use
  Company Number: US-SHIRE-US201828087

PATIENT
  Age: 45 Year
  Sex: Female
  Weight: 83.45 kg

DRUGS (2)
  1. GATTEX [Suspect]
     Active Substance: TEDUGLUTIDE\WATER
     Indication: SHORT-BOWEL SYNDROME
     Dosage: UNK, 1X/DAY:QD
     Route: 058
     Dates: start: 20180615
  2. GATTEX [Suspect]
     Active Substance: TEDUGLUTIDE\WATER
     Dosage: 3.8 MG, 1X/DAY:QD
     Route: 058
     Dates: start: 20180611

REACTIONS (8)
  - Abdominal pain [Unknown]
  - Insomnia [Unknown]
  - Hernia [Unknown]
  - Dyspepsia [Unknown]
  - Stoma complication [Unknown]
  - Abdominal distension [Unknown]
  - Oedema [Unknown]
  - Gastrooesophageal reflux disease [Unknown]

NARRATIVE: CASE EVENT DATE: 20180725
